FAERS Safety Report 7146420-6 (Version None)
Quarter: 2010Q4

REPORT INFORMATION
  Report Type: 
  Country: None (occurrence: None)
  Receive Date: 20101208
  Receipt Date: 20100923
  Transmission Date: 20110411
  Serious: Yes (Other)
  Sender: FDA-Public Use
  Company Number: US-BRISTOL-MYERS SQUIBB COMPANY-15236052

PATIENT
  Age: 53 Year
  Sex: Male

DRUGS (3)
  1. PRAVACHOL [Suspect]
     Indication: MIXED HYPERLIPIDAEMIA
     Dosage: 1 TABS
     Route: 048
     Dates: start: 20100726
  2. ALLOPURINOL [Concomitant]
  3. NAPROXEN [Concomitant]

REACTIONS (4)
  - ALANINE AMINOTRANSFERASE INCREASED [None]
  - BLOOD ALKALINE PHOSPHATASE INCREASED [None]
  - INFLUENZA LIKE ILLNESS [None]
  - RHABDOMYOLYSIS [None]
